FAERS Safety Report 14156655 (Version 3)
Quarter: 2018Q1

REPORT INFORMATION
  Report Type: Spontaneous
  Country: DE (occurrence: DE)
  Receive Date: 20171103
  Receipt Date: 20180303
  Transmission Date: 20180508
  Serious: Yes (Life-Threatening, Hospitalization, Other)
  Sender: FDA-Public Use
  Company Number: DE-AUROBINDO-AUR-APL-2017-42999

PATIENT
  Age: 60 Year
  Sex: Male

DRUGS (4)
  1. METOPROLOL SUCCINATE. [Concomitant]
     Active Substance: METOPROLOL SUCCINATE
     Indication: ANTICOAGULANT THERAPY
     Dosage: 47.5 MILLIGRAM
     Route: 048
  2. RIVAROXABAN [Concomitant]
     Active Substance: RIVAROXABAN
     Indication: ANTICOAGULANT THERAPY
     Dosage: 20 MILLIGRAM
     Route: 048
  3. FLECAINIDE [Suspect]
     Active Substance: FLECAINIDE
     Indication: CARDIOVERSION
     Dosage: 1 MG/KG OVER 5 MINUTES
     Route: 042
  4. FLECAINIDE [Suspect]
     Active Substance: FLECAINIDE
     Dosage: 0.3 MG/KG,(25 MINUTES ANOTHER DOSE OF 0.3 MG/KG)
     Route: 042

REACTIONS (2)
  - Circulatory collapse [Recovered/Resolved]
  - Cardiovascular insufficiency [Recovered/Resolved]
